FAERS Safety Report 4931098-X (Version None)
Quarter: 2006Q1

REPORT INFORMATION
  Report Type: 
  Country: None (occurrence: None)
  Receive Date: 20060302
  Receipt Date: 20050912
  Transmission Date: 20060701
  Serious: Yes (Hospitalization, Disabling)
  Sender: FDA-Public Use
  Company Number: US-MERCK-0509USA01438

PATIENT
  Age: 59 Year
  Sex: Female
  Weight: 83 kg

DRUGS (4)
  1. VIOXX [Suspect]
     Indication: OSTEOPOROSIS
     Route: 048
     Dates: start: 20000201, end: 20040501
  2. VIOXX [Suspect]
     Route: 048
     Dates: start: 20000201, end: 20040501
  3. VIOXX [Suspect]
     Indication: BACK PAIN
     Route: 048
     Dates: start: 20000201, end: 20040501
  4. VIOXX [Suspect]
     Route: 048
     Dates: start: 20000201, end: 20040501

REACTIONS (12)
  - ABDOMINAL ADHESIONS [None]
  - BONE DISORDER [None]
  - CORONARY ARTERY DISEASE [None]
  - DYSPNOEA [None]
  - ELECTROCARDIOGRAM ABNORMAL [None]
  - FALL [None]
  - HEAD INJURY [None]
  - HEADACHE [None]
  - HIP FRACTURE [None]
  - MYOCARDIAL INFARCTION [None]
  - PALPITATIONS [None]
  - STRESS FRACTURE [None]
